FAERS Safety Report 6580703-3 (Version None)
Quarter: 2010Q1

REPORT INFORMATION
  Report Type: 
  Country: None (occurrence: None)
  Receive Date: 20100212
  Receipt Date: 20100205
  Transmission Date: 20100710
  Serious: Yes (Life-Threatening)
  Sender: FDA-Public Use
  Company Number: JP-MERCK-1001USA03715

PATIENT
  Age: 63 Year
  Sex: Male

DRUGS (7)
  1. PEPCID [Suspect]
     Route: 041
     Dates: start: 20100113, end: 20100127
  2. NEOPHAGEN INJECTION [Concomitant]
     Route: 065
     Dates: start: 20100113
  3. PANTOL [Concomitant]
     Route: 065
     Dates: start: 20100114
  4. VANCOMYCIN HYDROCHLORIDE [Concomitant]
     Route: 065
     Dates: start: 20100115
  5. FUNGUARD [Concomitant]
     Route: 065
     Dates: start: 20100114, end: 20100123
  6. ERYTHROMYCIN ETHYLSUCCINATE [Concomitant]
     Route: 065
  7. MARZULENE [Concomitant]
     Route: 065
     Dates: start: 20100113

REACTIONS (2)
  - SINUS ARREST [None]
  - SINUS BRADYCARDIA [None]
